FAERS Safety Report 6445169-2 (Version None)
Quarter: 2009Q4

REPORT INFORMATION
  Report Type: 
  Country: None (occurrence: None)
  Receive Date: 20091117
  Receipt Date: 20091117
  Transmission Date: 20100525
  Serious: Yes (Other)
  Sender: FDA-Public Use
  Company Number: None

PATIENT
  Age: 63 Year
  Sex: Male
  Weight: 83.9154 kg

DRUGS (1)
  1. GUANFACINE HYDROCHLORIDE [Suspect]
     Indication: HYPERTENSION
     Dosage: 2 MG 1X DAILY PO
     Route: 048
     Dates: start: 20091106, end: 20091113

REACTIONS (15)
  - ASTHENIA [None]
  - CHAPPED LIPS [None]
  - CONFUSIONAL STATE [None]
  - DEPRESSION [None]
  - DIZZINESS [None]
  - DRY MOUTH [None]
  - DRY THROAT [None]
  - GLOSSODYNIA [None]
  - INITIAL INSOMNIA [None]
  - MALAISE [None]
  - PHARYNGEAL ULCERATION [None]
  - SEDATION [None]
  - SOMNOLENCE [None]
  - SPEECH DISORDER [None]
  - VASCULITIS [None]
